FAERS Safety Report 12206042 (Version 2)
Quarter: 2016Q2

REPORT INFORMATION
  Report Type: Spontaneous
  Country: GB (occurrence: GB)
  Receive Date: 20160323
  Receipt Date: 20160420
  Transmission Date: 20160815
  Serious: Yes (Other)
  Sender: FDA-Public Use
  Company Number: GB-009507513-1602GBR007377

PATIENT
  Age: 53 Year
  Sex: Female

DRUGS (10)
  1. OLANZAPINE. [Concomitant]
     Active Substance: OLANZAPINE
     Dosage: 15 MG, QD
     Dates: start: 201508
  2. LOPERAMIDE [Concomitant]
     Active Substance: LOPERAMIDE
     Dosage: 4 MG, TID
     Dates: start: 201508
  3. SERTRALINE HYDROCHLORIDE. [Concomitant]
     Active Substance: SERTRALINE HYDROCHLORIDE
     Indication: DEPRESSION
     Dosage: 100 MG, QD
     Dates: start: 201508
  4. POSACONAZOLE [Suspect]
     Active Substance: POSACONAZOLE
     Indication: PULMONARY ARTERY ANEURYSM
     Dosage: 300 MG, QD (STRENGTH: 300MG IN 5 ML)
     Route: 048
     Dates: start: 201510
  5. POSACONAZOLE [Suspect]
     Active Substance: POSACONAZOLE
     Indication: PULMONARY ARTERY ANEURYSM
     Dosage: 300 MG, QD
     Route: 048
     Dates: start: 201509
  6. POSACONAZOLE [Suspect]
     Active Substance: POSACONAZOLE
     Indication: ASPERGILLUS INFECTION
  7. TRIMOXAZOLE [Concomitant]
     Dosage: 960 MG, BID
     Dates: start: 201508
  8. MIRTAZAPINE. [Concomitant]
     Active Substance: MIRTAZAPINE
     Indication: DEPRESSION
     Dosage: 30 MG, ON
     Route: 048
     Dates: start: 201508
  9. POSACONAZOLE [Suspect]
     Active Substance: POSACONAZOLE
     Indication: ASPERGILLUS INFECTION
     Dosage: 300 MG, QD (STRENGTH: 300MG IN 5 ML)
     Route: 048
     Dates: start: 201512
  10. LANSOPRAZOLE. [Concomitant]
     Active Substance: LANSOPRAZOLE
     Dosage: 30 MG, ON
     Dates: start: 201508

REACTIONS (2)
  - Dose calculation error [Unknown]
  - Underdose [Unknown]

NARRATIVE: CASE EVENT DATE: 20151027
